FAERS Safety Report 10082298 (Version 1)
Quarter: 2014Q2

REPORT INFORMATION
  Report Type: Spontaneous
  Country: JP (occurrence: JP)
  Receive Date: 20140416
  Receipt Date: 20140416
  Transmission Date: 20141212
  Serious: Yes (Death, Hospitalization, Other)
  Sender: FDA-Public Use
  Company Number: JP-NAPPMUNDI-GBR-2014-0017980

PATIENT
  Age: 70 Year
  Sex: Male

DRUGS (3)
  1. OXYCODONE HCL PR TABLET [Suspect]
     Indication: CANCER PAIN
     Dosage: 240 MG, DAILY
     Route: 048
     Dates: start: 201403, end: 20140331
  2. OXYCODONE HCL PR TABLET [Suspect]
     Dosage: 160 MG, DAILY
     Route: 048
     Dates: start: 20140401, end: 20140403
  3. OXYCODONE HCL IMMEDIATE RELEASE TABLETS [Suspect]
     Indication: CANCER PAIN
     Dosage: 80 MG, DAILY
     Route: 048
     Dates: start: 201403, end: 20140403

REACTIONS (3)
  - Colon cancer [Fatal]
  - Delirium [Not Recovered/Not Resolved]
  - Anaemia [Unknown]
